FAERS Safety Report 21280371 (Version 1)
Quarter: 2022Q3

REPORT INFORMATION
  Report Type: Other
  Country: RO (occurrence: None)
  Receive Date: 20220901
  Receipt Date: 20220901
  Transmission Date: 20221026
  Serious: Yes (Other)
  Sender: FDA-Public Use
  Company Number: RO-ROCHE-2626222

PATIENT
  Sex: Female
  Weight: 78 kg

DRUGS (1)
  1. HERCEPTIN [Suspect]
     Active Substance: TRASTUZUMAB
     Indication: Invasive breast carcinoma
     Route: 058
     Dates: start: 2018

REACTIONS (13)
  - Administration site pain [Recovered/Resolved]
  - Administration site swelling [Recovered/Resolved]
  - Administration site vesicles [Recovered/Resolved]
  - Administration site erythema [Recovered/Resolved]
  - Administration site erythema [Recovered/Resolved]
  - Memory impairment [Unknown]
  - Recurrent cancer [Unknown]
  - Metastases to lung [Unknown]
  - Hypertension [Unknown]
  - Angina pectoris [Unknown]
  - Aortic valve incompetence [Unknown]
  - Mitral valve incompetence [Unknown]
  - Lipogranuloma [Unknown]
